FAERS Safety Report 17166204 (Version 1)
Quarter: 2019Q4

REPORT INFORMATION
  Report Type: Spontaneous
  Country: None (occurrence: UG)
  Receive Date: 20191217
  Receipt Date: 20191217
  Transmission Date: 20200122
  Serious: Yes (Hospitalization)
  Sender: FDA-Public Use
  Company Number: UG-POPULATION COUNCIL, INC.-2077922

PATIENT
  Age: 40 Year
  Sex: Female
  Weight: 72 kg

DRUGS (1)
  1. JADELLE [Suspect]
     Active Substance: LEVONORGESTREL
     Indication: CONTRACEPTION
     Route: 059
     Dates: start: 20191106, end: 20191129

REACTIONS (2)
  - Implant site necrosis [None]
  - Osteonecrosis [None]

NARRATIVE: CASE EVENT DATE: 201911
